FAERS Safety Report 18468149 (Version 1)
Quarter: 2020Q4

REPORT INFORMATION
  Report Type: Spontaneous
  Country: US (occurrence: US)
  Receive Date: 20201104
  Receipt Date: 20201104
  Transmission Date: 20210114
  Serious: Yes (Other)
  Sender: FDA-Public Use
  Company Number: None

PATIENT
  Age: 54 Year
  Sex: Female

DRUGS (1)
  1. HUMIRA [Suspect]
     Active Substance: ADALIMUMAB
     Dosage: ?          OTHER FREQUENCY:Q 14 DAYS;?
     Route: 058

REACTIONS (6)
  - Skin lesion [None]
  - Blister [None]
  - Pain of skin [None]
  - Scar [None]
  - Skin swelling [None]
  - Skin exfoliation [None]

NARRATIVE: CASE EVENT DATE: 20201102
